FAERS Safety Report 7790976-7 (Version None)
Quarter: 2011Q4

REPORT INFORMATION
  Report Type: 
  Country: None (occurrence: None)
  Receive Date: 20111002
  Receipt Date: 20110923
  Transmission Date: 20120403
  Serious: Yes (Other)
  Sender: FDA-Public Use
  Company Number: PHEH2011US05009

PATIENT
  Sex: Female
  Weight: 72.108 kg

DRUGS (2)
  1. ZOMETA [Suspect]
     Indication: HYPERCALCAEMIA
     Dosage: 4 MG,
     Dates: start: 20011226, end: 20041208
  2. AREDIA [Suspect]
     Indication: HYPERCALCAEMIA
     Dosage: 90 MG, QMO
     Dates: start: 20010315, end: 20011226

REACTIONS (2)
  - OTITIS MEDIA [None]
  - EAR PAIN [None]
